FAERS Safety Report 10364526 (Version 1)
Quarter: 2014Q3

REPORT INFORMATION
  Report Type: Spontaneous
  Country: US (occurrence: None)
  Receive Date: 20140804
  Receipt Date: 20140804
  Transmission Date: 20150326
  Serious: Yes (Disabling)
  Sender: FDA-Public Use
  Company Number: None

PATIENT
  Age: 57 Year
  Sex: Female
  Weight: 68.04 kg

DRUGS (2)
  1. LAMICTAL [Suspect]
     Active Substance: LAMOTRIGINE
  2. TOPAMAX [Suspect]
     Active Substance: TOPIRAMATE
     Indication: CONVULSION
     Route: 048

REACTIONS (1)
  - Hemiplegia [None]

NARRATIVE: CASE EVENT DATE: 20140801
